FAERS Safety Report 19067649 (Version 1)
Quarter: 2021Q1

REPORT INFORMATION
  Report Type: Spontaneous
  Country: GB (occurrence: GB)
  Receive Date: 20210329
  Receipt Date: 20210329
  Transmission Date: 20210420
  Serious: Yes (Other)
  Sender: FDA-Public Use
  Company Number: GB-TEVA-2021-GB-1894363

PATIENT
  Age: 62 Year
  Sex: Male
  Weight: 78 kg

DRUGS (5)
  1. TRAMADOL. [Concomitant]
     Active Substance: TRAMADOL
     Dosage: 400 MILLIGRAM DAILY;
     Dates: start: 20201202
  2. THEICAL?D3 [Concomitant]
     Dosage: 1 DOSAGE FORMS DAILY; 1000MG/880UNIT
     Dates: start: 20201027
  3. ALENDRONIC ACID [Suspect]
     Active Substance: ALENDRONIC ACID
     Indication: JOINT INJECTION
     Dosage: 70 MG
     Route: 048
  4. ACIDEX [Concomitant]
     Dosage: 10 ML AFTER MEALS AND AT BEDTIME AS REQUIRED
     Dates: start: 20201201
  5. RISEDRONATE SODIUM. [Concomitant]
     Active Substance: RISEDRONATE SODIUM
     Dates: start: 20201210

REACTIONS (2)
  - Myalgia [Recovered/Resolved]
  - Influenza like illness [Recovered/Resolved]

NARRATIVE: CASE EVENT DATE: 20201222
